FAERS Safety Report 10144099 (Version 4)
Quarter: 2014Q2

REPORT INFORMATION
  Report Type: Spontaneous
  Country: FR (occurrence: FR)
  Receive Date: 20140430
  Receipt Date: 20140515
  Transmission Date: 20141212
  Serious: Yes (Hospitalization, Disabling, Congenital Anomaly, Other)
  Sender: FDA-Public Use
  Company Number: FR-ABBVIE-06P-056-0325643-00

PATIENT
  Age: 1 Day
  Sex: Female

DRUGS (1)
  1. DEPAKINE TABLETS [Suspect]
     Indication: MATERNAL EXPOSURE TIMING UNSPECIFIED
     Route: 064

REACTIONS (46)
  - Psychomotor retardation [Unknown]
  - Infantile asthma [Unknown]
  - Speech disorder developmental [Unknown]
  - Partial seizures [Unknown]
  - Dyskinesia [Unknown]
  - Electroencephalogram abnormal [Unknown]
  - Deafness [Unknown]
  - Hypoacusis [Unknown]
  - Fall [Unknown]
  - Hypertonia [Unknown]
  - Obsessive-compulsive disorder [Unknown]
  - Panic attack [Unknown]
  - Balance disorder [Unknown]
  - Joint laxity [Unknown]
  - Ligament laxity [Unknown]
  - Balance disorder [Unknown]
  - Learning disorder [Unknown]
  - Coordination abnormal [Unknown]
  - Learning disorder [Unknown]
  - Congenital oral malformation [Unknown]
  - Encephalopathy [Unknown]
  - Generalised anxiety disorder [Unknown]
  - Speech disorder developmental [Unknown]
  - Autism spectrum disorder [Unknown]
  - Congenital hearing disorder [Unknown]
  - Hypertelorism of orbit [Unknown]
  - Cerebral atrophy [Recovered/Resolved with Sequelae]
  - Dysmorphism [Unknown]
  - Nose deformity [Unknown]
  - Congenital nose malformation [Unknown]
  - Congenital nose malformation [Unknown]
  - Congenital nose malformation [Unknown]
  - Congenital anomaly [Unknown]
  - Dysmorphism [Unknown]
  - Malaise [Unknown]
  - Hypotonia [Unknown]
  - Cyanosis [Unknown]
  - Gastrooesophageal reflux disease [Unknown]
  - Myopia [Unknown]
  - Developmental delay [Unknown]
  - Speech disorder developmental [Unknown]
  - Rhinitis [Unknown]
  - Otitis media [Unknown]
  - Cleft uvula [Unknown]
  - Head circumference abnormal [Unknown]
  - Foetal exposure during pregnancy [Unknown]
